FAERS Safety Report 6461853-9 (Version None)
Quarter: 2009Q4

REPORT INFORMATION
  Report Type: 
  Country: None (occurrence: None)
  Receive Date: 20091130
  Receipt Date: 20091118
  Transmission Date: 20100525
  Serious: Yes (Other)
  Sender: FDA-Public Use
  Company Number: PHHY2009JP45025

PATIENT
  Age: 61 Year
  Sex: Male

DRUGS (5)
  1. NEORAL [Suspect]
     Indication: RENAL TRANSPLANT
     Dosage: UNK
     Route: 048
     Dates: start: 20000901
  2. PREDNISOLONE [Suspect]
     Indication: RENAL TRANSPLANT
     Dosage: 15 MG
  3. PREDNISOLONE [Suspect]
     Indication: RENAL IMPAIRMENT
  4. AZATHIOPRINE [Suspect]
     Indication: RENAL TRANSPLANT
  5. FK 506 [Suspect]
     Indication: RENAL TRANSPLANT

REACTIONS (17)
  - ADRENAL DISORDER [None]
  - AORTIC INJURY [None]
  - DEPRESSED LEVEL OF CONSCIOUSNESS [None]
  - DIFFUSE LARGE B-CELL LYMPHOMA STAGE IV [None]
  - DIPLOPIA [None]
  - DISORDER OF ORBIT [None]
  - DISSEMINATED INTRAVASCULAR COAGULATION [None]
  - HYPERCALCAEMIA [None]
  - HYPOGLYCAEMIA [None]
  - HYPOTENSION [None]
  - KIDNEY TRANSPLANT REJECTION [None]
  - METASTASES TO BONE MARROW [None]
  - METASTASES TO THORAX [None]
  - OCULAR NEOPLASM [None]
  - RENAL IMPAIRMENT [None]
  - TREATMENT NONCOMPLIANCE [None]
  - TUMOUR EXCISION [None]
